FAERS Safety Report 25841177 (Version 1)
Quarter: 2025Q3

REPORT INFORMATION
  Report Type: Spontaneous
  Country: US (occurrence: None)
  Receive Date: 20250923
  Receipt Date: 20250923
  Transmission Date: 20251021
  Serious: No
  Sender: FDA-CTU
  Company Number: None

PATIENT
  Sex: Male
  Weight: 80.5 kg

DRUGS (8)
  1. LENVIMA [Suspect]
     Active Substance: LENVATINIB
     Indication: Renal cancer
     Dosage: FREQUENCY : DAILY;?
     Route: 048
     Dates: start: 20250903
  2. EVEROLIMUS [Concomitant]
     Active Substance: EVEROLIMUS
  3. ELIQUIS [Concomitant]
     Active Substance: APIXABAN
  4. SIMVASTATIN [Concomitant]
     Active Substance: SIMVASTATIN
  5. OXYCODONE [Concomitant]
     Active Substance: OXYCODONE
  6. METHYLPHENIDATE [Concomitant]
     Active Substance: METHYLPHENIDATE
  7. METHOCARBAMOL [Concomitant]
     Active Substance: METHOCARBAMOL
  8. LOSARTAN [Concomitant]
     Active Substance: LOSARTAN

REACTIONS (1)
  - Hypoaesthesia [None]
